FAERS Safety Report 20155917 (Version 3)
Quarter: 2022Q1

REPORT INFORMATION
  Report Type: Report from Study
  Country: DE (occurrence: DE)
  Receive Date: 20211207
  Receipt Date: 20220201
  Transmission Date: 20220423
  Serious: Yes (Death, Life-Threatening, Hospitalization, Other)
  Sender: FDA-Public Use
  Company Number: DE-GILEAD-2021-0557385

PATIENT
  Age: 61 Year
  Sex: Female
  Weight: 75.5 kg

DRUGS (7)
  1. SACITUZUMAB GOVITECAN [Suspect]
     Active Substance: SACITUZUMAB GOVITECAN
     Indication: Triple negative breast cancer
     Dosage: 750 MG
     Route: 042
     Dates: start: 20211014, end: 20211014
  2. ACETAMINOPHEN\CAFFEINE\PROPYPHENAZONE [Concomitant]
     Active Substance: ACETAMINOPHEN\CAFFEINE\PROPYPHENAZONE
  3. IBUPROFEN [Concomitant]
     Active Substance: IBUPROFEN
  4. FILGRASTIM [Concomitant]
     Active Substance: FILGRASTIM
     Dosage: UNK
     Dates: start: 20211021, end: 20211030
  5. ERYPO [EPOETIN ALFA] [Concomitant]
     Dosage: UNK
     Dates: start: 20211021
  6. CIPROFLOXACIN [Concomitant]
     Active Substance: CIPROFLOXACIN
     Dosage: UNK
     Dates: start: 20211021
  7. CALCIUM EFFERVESCENS [CALCIUM CARBONATE;CALCIUM LACTATE GLUCONATE] [Concomitant]
     Dosage: UNK
     Dates: end: 20211030

REACTIONS (3)
  - Death [Fatal]
  - Pancytopenia [Not Recovered/Not Resolved]
  - Thrombocytopenia [Unknown]

NARRATIVE: CASE EVENT DATE: 20211021
